FAERS Safety Report 6569597-X (Version None)
Quarter: 2010Q1

REPORT INFORMATION
  Report Type: 
  Country: None (occurrence: None)
  Receive Date: 20100204
  Receipt Date: 20100126
  Transmission Date: 20100710
  Serious: Yes (Hospitalization)
  Sender: FDA-Public Use
  Company Number: LB-TYCO HEALTHCARE/MALLINCKRODT-T201000533

PATIENT
  Age: 55 Year
  Sex: Female
  Weight: 90 kg

DRUGS (2)
  1. OPTIRAY 350 [Suspect]
     Indication: COMPUTERISED TOMOGRAM
     Dosage: 80 ML, SINGLE
     Route: 042
     Dates: start: 20100113, end: 20100113
  2. ORAL CONTRAST [Concomitant]
     Dosage: 50 ML ORAL CONTRAST IN 1.5 L WATER
     Route: 048
     Dates: start: 20100112, end: 20100112

REACTIONS (5)
  - DYSPNOEA [None]
  - HYPOTENSION [None]
  - RASH [None]
  - SUFFOCATION FEELING [None]
  - VOMITING [None]
